FAERS Safety Report 6321577-5 (Version None)
Quarter: 2009Q3

REPORT INFORMATION
  Report Type: 
  Country: None (occurrence: None)
  Receive Date: 20090820
  Receipt Date: 20090820
  Transmission Date: 20100115
  Serious: Yes (Other)
  Sender: FDA-Public Use
  Company Number: None

PATIENT
  Sex: Male
  Weight: 51.4 kg

DRUGS (2)
  1. RISPERIDONE [Suspect]
     Indication: AGGRESSION
     Dosage: 2 MG TWICE DAILY ORALLY WK OF 8-10-09
     Route: 048
  2. RISPERIDONE [Suspect]
     Indication: AUTISM
     Dosage: 2 MG TWICE DAILY ORALLY WK OF 8-10-09
     Route: 048

REACTIONS (2)
  - AGGRESSION [None]
  - PRODUCT SUBSTITUTION ISSUE [None]
